FAERS Safety Report 8141797-7 (Version None)
Quarter: 2012Q1

REPORT INFORMATION
  Report Type: 
  Country: None (occurrence: None)
  Receive Date: 20120216
  Receipt Date: 20120214
  Transmission Date: 20120608
  Serious: Yes (Hospitalization)
  Sender: FDA-Public Use
  Company Number: US-B.I. PHARMACEUTICALS,INC./RIDGEFIELD-2012-BP-01468BP

PATIENT
  Sex: Male
  Weight: 92.08 kg

DRUGS (10)
  1. LOTREL [Concomitant]
     Route: 048
  2. PRADAXA [Suspect]
     Indication: ATRIAL FIBRILLATION
     Dosage: 300 MG
     Route: 048
     Dates: start: 20110804, end: 20120126
  3. DIGOXIN [Concomitant]
     Dosage: 250 MCG
     Route: 048
  4. KOMBIGLYZE XR [Concomitant]
     Route: 048
  5. ALLOPURINOL [Concomitant]
     Dosage: 300 MG
     Route: 048
  6. SIMVASTATIN [Concomitant]
     Dosage: 40 MG
     Route: 048
  7. PRADAXA [Suspect]
     Indication: CEREBROVASCULAR ACCIDENT PROPHYLAXIS
  8. PRILOSEC [Concomitant]
     Dosage: 20 MG
     Route: 048
  9. TENORMIN [Concomitant]
     Dosage: 250 MG
     Route: 048
  10. ONE TOUCH ULTRA TEST STRIPS [Concomitant]

REACTIONS (2)
  - CEREBROVASCULAR ACCIDENT [None]
  - APHASIA [None]
